FAERS Safety Report 25127337 (Version 1)
Quarter: 2025Q1

REPORT INFORMATION
  Report Type: Spontaneous
  Country: SE (occurrence: SE)
  Receive Date: 20250327
  Receipt Date: 20250327
  Transmission Date: 20250409
  Serious: Yes (Other)
  Sender: ORGANON
  Company Number: SE-GLENMARK PHARMACEUTICALS-2025GMK098629

PATIENT
  Sex: Female

DRUGS (2)
  1. DESLORATADINE [Suspect]
     Active Substance: DESLORATADINE
     Indication: Eczema nummular
     Route: 065
  2. ACETAMINOPHEN [Concomitant]
     Active Substance: ACETAMINOPHEN
     Indication: Product used for unknown indication
     Route: 065

REACTIONS (3)
  - Foreign body in throat [Unknown]
  - Product use complaint [Unknown]
  - Product use in unapproved indication [Unknown]
